FAERS Safety Report 24074836 (Version 1)
Quarter: 2024Q3

REPORT INFORMATION
  Report Type: Spontaneous
  Country: PL (occurrence: PL)
  Receive Date: 20240710
  Receipt Date: 20240710
  Transmission Date: 20241017
  Serious: Yes (Other)
  Sender: BAXTER
  Company Number: None

PATIENT
  Age: 73 Year
  Sex: Male
  Weight: 84.5 kg

DRUGS (7)
  1. PROPOFOL [Suspect]
     Active Substance: PROPOFOL
     Indication: Varices oesophageal
     Dosage: (DOSAGE TEXT: DOSE UNKNOWN)
     Route: 042
     Dates: start: 20231212, end: 20231212
  2. FENTANYL [Suspect]
     Active Substance: FENTANYL\FENTANYL CITRATE
     Indication: Varices oesophageal
     Dosage: (DOSAGE TEXT: DOSE UNKNOWN)
     Route: 042
     Dates: start: 20231212, end: 20231212
  3. MIDAZOLAM HYDROCHLORIDE [Concomitant]
     Active Substance: MIDAZOLAM HYDROCHLORIDE
     Indication: Varices oesophageal
     Dosage: (DOSAGE TEXT: DOSE UNKNOWN)
     Route: 042
     Dates: start: 20231212, end: 20231212
  4. HEPA MERZ [Concomitant]
     Dosage: (DOSAGE TEXT: MEDICINE TAKEN CHRONICALLY)
     Route: 065
  5. Noliprel [Concomitant]
     Dosage: (DOSAGE TEXT: MEDICINE TAKEN CHRONICALLY)
     Route: 065
  6. EBIVOL [Concomitant]
     Dosage: (DOSAGE TEXT: MEDICINE TAKEN CHRONICALLY)
     Route: 065
  7. OXYCONTIN [Concomitant]
     Active Substance: OXYCODONE HYDROCHLORIDE
     Dosage: (DOSAGE TEXT: MEDICINE TAKEN CHRONICALLY)
     Route: 065

REACTIONS (2)
  - Cough [Recovered/Resolved]
  - Bronchospasm [Recovered/Resolved]

NARRATIVE: CASE EVENT DATE: 20231213
